FAERS Safety Report 9621784 (Version 2)
Quarter: 2013Q4

REPORT INFORMATION
  Report Type: Report from Study
  Country: GB (occurrence: GB)
  Receive Date: 20131015
  Receipt Date: 20131104
  Transmission Date: 20140711
  Serious: Yes (Hospitalization, Other)
  Sender: FDA-Public Use
  Company Number: GB-009507513-1310GBR006339

PATIENT
  Age: 53 Year
  Sex: Female
  Weight: 43.3 kg

DRUGS (7)
  1. REBETOL [Suspect]
     Indication: CHRONIC HEPATITIS C
     Dosage: 200 MG, BID
     Route: 048
     Dates: start: 20130115, end: 20130820
  2. INTERFERON ALFA-2A [Suspect]
     Indication: CHRONIC HEPATITIS C
     Dosage: 180 MICROGRAM, QW
     Route: 058
     Dates: start: 20130115, end: 20130820
  3. CLOPIDOGREL BISULFATE [Concomitant]
     Indication: MYOCARDIAL INFARCTION
     Dosage: 75 MG, QD
     Route: 048
     Dates: start: 20130820
  4. RANITIDINE [Concomitant]
     Indication: GASTRITIS
     Dosage: 150 MG, BID
     Route: 048
     Dates: start: 20130820
  5. ROSUVASTATIN CALCIUM [Concomitant]
     Indication: HYPERCHOLESTEROLAEMIA
     Dosage: 5 MG, QD
     Route: 048
     Dates: start: 20130820
  6. BISOPROLOL [Concomitant]
     Indication: ANGINA PECTORIS
     Dosage: 5 MG, QD
     Route: 048
     Dates: end: 20130820
  7. TRUVADA [Concomitant]
     Indication: HIV INFECTION

REACTIONS (4)
  - Pneumonia [Recovered/Resolved]
  - Meningitis [Recovered/Resolved with Sequelae]
  - Subarachnoid haemorrhage [Recovered/Resolved]
  - Cholecystitis [Recovered/Resolved]
